FAERS Safety Report 4420587-2 (Version None)
Quarter: 2004Q3

REPORT INFORMATION
  Report Type: 
  Country: None (occurrence: None)
  Receive Date: 20040809
  Receipt Date: 20040402
  Transmission Date: 20050211
  Serious: No
  Sender: FDA-Public Use
  Company Number: US-GLAXOSMITHKLINE-A0506035A

PATIENT
  Sex: Male
  Weight: 115.9 kg

DRUGS (1)
  1. PAXIL CR [Suspect]
     Indication: ANXIETY
     Route: 048
     Dates: start: 20030101

REACTIONS (5)
  - DYSGEUSIA [None]
  - HEADACHE [None]
  - IRRITABILITY [None]
  - MOOD ALTERED [None]
  - PARAESTHESIA [None]
